FAERS Safety Report 7940798-9 (Version None)
Quarter: 2011Q4

REPORT INFORMATION
  Report Type: 
  Country: None (occurrence: None)
  Receive Date: 20111128
  Receipt Date: 20111123
  Transmission Date: 20120403
  Serious: Yes (Congenital Anomaly, Other)
  Sender: FDA-Public Use
  Company Number: US-PFIZER INC-2011270341

PATIENT
  Sex: Male
  Weight: 3.4 kg

DRUGS (3)
  1. MULTI-VITAMINS [Concomitant]
     Dosage: UNK
     Route: 064
  2. ZOLOFT [Suspect]
     Indication: DEPRESSION
     Dosage: 50 MG, DAILY
     Route: 064
  3. ZOLOFT [Suspect]
     Dosage: 75 MG, DAILY
     Route: 064

REACTIONS (8)
  - ATRIAL SEPTAL DEFECT [None]
  - BICUSPID AORTIC VALVE [None]
  - VENTRICULAR HYPERTROPHY [None]
  - MATERNAL EXPOSURE TIMING UNSPECIFIED [None]
  - COARCTATION OF THE AORTA [None]
  - TRICUSPID VALVE INCOMPETENCE [None]
  - AORTIC DILATATION [None]
  - PATENT DUCTUS ARTERIOSUS [None]
